FAERS Safety Report 20854547 (Version 2)
Quarter: 2022Q2

REPORT INFORMATION
  Report Type: Report from Study
  Country: RO (occurrence: RO)
  Receive Date: 20220520
  Receipt Date: 20220528
  Transmission Date: 20220721
  Serious: Yes (Death, Hospitalization, Other)
  Sender: FDA-Public Use
  Company Number: RO-ABBVIE-22K-135-4400496-00

PATIENT
  Age: 57 Year
  Sex: Female

DRUGS (2)
  1. CARBIDOPA\LEVODOPA [Suspect]
     Active Substance: CARBIDOPA\LEVODOPA
     Indication: Parkinson^s disease
     Dosage: DM 5.00 DC 2.60 ED 1.00 NRED 0; DMN 0.00 DCN0 .00 EDN 0.00 NREDN 0
     Route: 050
     Dates: start: 20100507, end: 20220526
  2. CARBIDOPA\LEVODOPA [Suspect]
     Active Substance: CARBIDOPA\LEVODOPA

REACTIONS (6)
  - COVID-19 [Recovering/Resolving]
  - Respiratory failure [Not Recovered/Not Resolved]
  - Respiratory failure [Fatal]
  - General physical health deterioration [Fatal]
  - Peripheral venous disease [Not Recovered/Not Resolved]
  - Sinus tachycardia [Not Recovered/Not Resolved]

NARRATIVE: CASE EVENT DATE: 20110101
